FAERS Safety Report 24186476 (Version 1)
Quarter: 2024Q3

REPORT INFORMATION
  Report Type: Spontaneous
  Country: DE (occurrence: DE)
  Receive Date: 20240808
  Receipt Date: 20240808
  Transmission Date: 20241017
  Serious: Yes (Hospitalization, Other)
  Sender: ACCORD
  Company Number: None

PATIENT
  Age: 80 Year
  Sex: Female

DRUGS (12)
  1. QUETIAPINE [Suspect]
     Active Substance: QUETIAPINE
     Indication: Product used for unknown indication
     Dosage: STRENGTH:  25 MG, 0-0-1 + 1 AS REQUIRED, TAKING IT FOR AT LEAST 1 YEAR
     Dates: end: 20240715
  2. CARBIMAZOLE [Suspect]
     Active Substance: CARBIMAZOLE
     Indication: Product used for unknown indication
     Dosage: STRENGTH: 20 MG, 1-0-0, INTAKE SINCE AT LEAST 2021
  3. BISOPROLOL [Concomitant]
     Active Substance: BISOPROLOL\BISOPROLOL FUMARATE
     Dosage: STRENGTH: 5 MG; 1-0-1, INTAKE SINCE AT LEAST 2021
  4. SITAGLIPTIN [Concomitant]
     Active Substance: SITAGLIPTIN
     Dosage: STRENGTH:  50 MG, 1-0-0
  5. ATORVASTATIN [Concomitant]
     Active Substance: ATORVASTATIN
     Dosage: STRENGTH: 20 MG, 0-0-2, INTAKE SINCE AT LEAST 2021
  6. XARELTO [Concomitant]
     Active Substance: RIVAROXABAN
     Dosage: STRENGTH: 20 MG, 1-0-0, INTAKE SINCE AT LEAST 2021
  7. ALBUTEROL [Concomitant]
     Active Substance: ALBUTEROL
     Dosage: STRENGTH: 100 MCG, AS NECESSARY
  8. TORSEMIDE [Concomitant]
     Active Substance: TORSEMIDE
     Dosage: STRENGTH: 10 MG, 1-0-0,  QUESTIONABLE INTAKE SINCE 2021
  9. METFORMIN\SITAGLIPTIN [Concomitant]
     Active Substance: METFORMIN\SITAGLIPTIN
     Dosage: STRENGTH: 1000 MG/50 MG, 1-0-0
  10. METAMIZOLE [Concomitant]
     Active Substance: METAMIZOLE
     Dosage: STRENGTH: 500 MG, AS NECESSARY
  11. PANTOPRAZOLE SODIUM [Concomitant]
     Active Substance: PANTOPRAZOLE SODIUM
     Dosage: STRENGTH: 40 MG, 0-0-1
  12. RAMIPRIL [Concomitant]
     Active Substance: RAMIPRIL
     Dosage: STRENGTH: 5 MG, 1-0-1, INTAKE SINCE AT LEAST 2021

REACTIONS (8)
  - Fall [Not Recovered/Not Resolved]
  - Spinal pain [Not Recovered/Not Resolved]
  - Confusional state [Not Recovered/Not Resolved]
  - Atrial fibrillation [Not Recovered/Not Resolved]
  - Blood creatine phosphokinase increased [Not Recovered/Not Resolved]
  - Seizure [Not Recovered/Not Resolved]
  - Hypothyroidism [Not Recovered/Not Resolved]
  - Hyponatraemia [Not Recovered/Not Resolved]

NARRATIVE: CASE EVENT DATE: 20240715
